FAERS Safety Report 15892248 (Version 1)
Quarter: 2019Q1

REPORT INFORMATION
  Report Type: Report from Study
  Country: US (occurrence: US)
  Receive Date: 20190130
  Receipt Date: 20190130
  Transmission Date: 20190417
  Serious: No
  Sender: FDA-Public Use
  Company Number: US-EXELIXIS-CABO-18014254

PATIENT
  Age: 54 Year
  Sex: Male

DRUGS (6)
  1. LEVOTHYROXINE. [Concomitant]
     Active Substance: LEVOTHYROXINE
     Dosage: UNK
  2. ADVAIR HFA [Concomitant]
     Active Substance: FLUTICASONE PROPIONATE\SALMETEROL XINAFOATE
     Dosage: UNK
  3. MULTIVITAMIN WITH FLUORIDE [Concomitant]
     Active Substance: .ALPHA.-TOCOPHEROL\.ALPHA.-TOCOPHEROL ACETATE\.ALPHA.-TOCOPHEROL ACETATE, DL-\ASCORBIC ACID\CHOLECALCIFEROL\COBALAMIN\CYANOCOBALAMIN\FLUORIDE ION\FOLIC ACID\NIACIN\NIACINAMIDE\PYRIDOXINE\PYRIDOXINE HYDROCHLORIDE\RIBOFLAVIN\SODIUM ASCORBATE\SODIUM FLUORIDE\THIAMINE\THIAMINE MONONITRATE\VITAMIN A\VITA
     Dosage: UNK
  4. COMETRIQ [Suspect]
     Active Substance: CABOZANTINIB S-MALATE
     Indication: THYROID CANCER
     Dosage: 60 MG, QD
     Route: 048
     Dates: start: 20180501, end: 201805
  5. COMETRIQ [Suspect]
     Active Substance: CABOZANTINIB S-MALATE
     Dosage: 60 MG, 2 DAYS ON AND 1 DAY OFF
     Route: 048
     Dates: start: 201805
  6. ATORVASTATIN CALCIUM. [Concomitant]
     Active Substance: ATORVASTATIN CALCIUM
     Dosage: UNK

REACTIONS (4)
  - Fatigue [Unknown]
  - Peripheral swelling [Unknown]
  - Oral pain [Unknown]
  - Dyspnoea [Recovered/Resolved]

NARRATIVE: CASE EVENT DATE: 201805
